FAERS Safety Report 10154623 (Version 1)
Quarter: 2014Q2

REPORT INFORMATION
  Report Type: Spontaneous
  Country: US (occurrence: US)
  Receive Date: 20140506
  Receipt Date: 20140506
  Transmission Date: 20141212
  Serious: Yes (Hospitalization)
  Sender: FDA-Public Use
  Company Number: US-AMGEN-USASP2014031397

PATIENT
  Age: 37 Year
  Sex: Female

DRUGS (3)
  1. PROLIA [Suspect]
     Indication: OSTEOPOROSIS
     Dosage: UNK
     Route: 065
     Dates: start: 201203
  2. VITAMIN D                          /00107901/ [Concomitant]
  3. MACROBID                           /00024401/ [Concomitant]
     Dosage: 100 MG, BID

REACTIONS (1)
  - Femur fracture [Unknown]
